APPROVED DRUG PRODUCT: ISOSORBIDE MONONITRATE
Active Ingredient: ISOSORBIDE MONONITRATE
Strength: 30MG
Dosage Form/Route: TABLET, EXTENDED RELEASE;ORAL
Application: A216557 | Product #001 | TE Code: AB
Applicant: AUROBINDO PHARMA LTD
Approved: Nov 7, 2022 | RLD: No | RS: No | Type: RX